FAERS Safety Report 6348516-5 (Version None)
Quarter: 2009Q3

REPORT INFORMATION
  Report Type: 
  Country: None (occurrence: None)
  Receive Date: 20090911
  Receipt Date: 20090908
  Transmission Date: 20100115
  Serious: Yes (Other)
  Sender: FDA-Public Use
  Company Number: JP-EISAI INC.-E2020-04034-SPO-JP

PATIENT
  Age: 90 Year
  Sex: Male

DRUGS (4)
  1. ARICEPT [Suspect]
     Indication: DEMENTIA ALZHEIMER'S TYPE
     Route: 048
     Dates: end: 20090115
  2. ARICEPT [Suspect]
     Route: 048
     Dates: start: 20090116, end: 20090119
  3. MUCODYNE [Concomitant]
  4. ALOTEC [Concomitant]
     Route: 048
     Dates: start: 20090119, end: 20090123

REACTIONS (2)
  - ATRIOVENTRICULAR BLOCK [None]
  - ELECTROCARDIOGRAM QT PROLONGED [None]
